FAERS Safety Report 13601718 (Version 23)
Quarter: 2020Q2

REPORT INFORMATION
  Report Type: Spontaneous
  Country: DE (occurrence: DE)
  Receive Date: 20170601
  Receipt Date: 20200415
  Transmission Date: 20200713
  Serious: Yes (Hospitalization, Disabling, Other)
  Sender: FDA-Public Use
  Company Number: DE-009507513-1705DEU015167

PATIENT
  Age: 40 Year
  Sex: Male
  Weight: 75 kg

DRUGS (3)
  1. CITALOPRAM [Concomitant]
     Active Substance: CITALOPRAM HYDROBROMIDE
     Dosage: 15 MG, IN THE MORNING
  2. PROPECIA [Suspect]
     Active Substance: FINASTERIDE
     Indication: ANDROGENETIC ALOPECIA
     Dosage: 0.5 MG TO 1 MG, UNK
     Route: 048
     Dates: start: 1999, end: 2012
  3. QUETIAPINE FUMARATE. [Concomitant]
     Active Substance: QUETIAPINE FUMARATE
     Dosage: 100 MG, FOR THE NIGHT
     Dates: end: 20170617

REACTIONS (109)
  - Restlessness [Not Recovered/Not Resolved]
  - Mental disorder [Not Recovered/Not Resolved]
  - Headache [Not Recovered/Not Resolved]
  - Tremor [Not Recovered/Not Resolved]
  - Night sweats [Not Recovered/Not Resolved]
  - Penis disorder [Unknown]
  - Peyronie^s disease [Unknown]
  - Illogical thinking [Unknown]
  - Wrong technique in product usage process [Unknown]
  - Varicocele [Unknown]
  - Dysuria [Unknown]
  - NAT2 polymorphism [Unknown]
  - Iron deficiency [Unknown]
  - Visual impairment [Not Recovered/Not Resolved]
  - Chest discomfort [Recovered/Resolved]
  - Mitochondrial cytopathy [Unknown]
  - Obsessive-compulsive personality disorder [Unknown]
  - Monoplegia [Unknown]
  - Malaise [Unknown]
  - Constipation [Not Recovered/Not Resolved]
  - Apathy [Unknown]
  - Bradyphrenia [Unknown]
  - Hair colour changes [Unknown]
  - Body fat disorder [Unknown]
  - Weight increased [Unknown]
  - Red blood cell count decreased [Unknown]
  - Muscle disorder [Unknown]
  - Cognitive disorder [Unknown]
  - C-reactive protein increased [Unknown]
  - Blood homocysteine increased [Recovered/Resolved]
  - Blood creatinine increased [Unknown]
  - Glutamate dehydrogenase increased [Unknown]
  - Neurotransmitter level altered [Unknown]
  - Aspartate aminotransferase increased [Not Recovered/Not Resolved]
  - Tachycardia [Recovered/Resolved]
  - Palpitations [Not Recovered/Not Resolved]
  - Confusional state [Not Recovered/Not Resolved]
  - Memory impairment [Unknown]
  - Arthralgia [Unknown]
  - Dry skin [Unknown]
  - Hyperhidrosis [Unknown]
  - Urinary incontinence [Unknown]
  - Oestradiol decreased [Recovered/Resolved]
  - Gait disturbance [Unknown]
  - Dyspnoea [Unknown]
  - Hyperventilation [Unknown]
  - Dizziness [Recovered/Resolved]
  - Head discomfort [Not Recovered/Not Resolved]
  - Muscle disorder [Not Recovered/Not Resolved]
  - Disorientation [Unknown]
  - Vitamin B12 increased [Unknown]
  - Vitamin D decreased [Recovered/Resolved]
  - High density lipoprotein increased [Recovered/Resolved]
  - CYP2C19 polymorphism [Unknown]
  - Muscular weakness [Unknown]
  - Presbyopia [Unknown]
  - Androgen deficiency [Recovered/Resolved]
  - Depression [Recovered/Resolved]
  - Hunger [Not Recovered/Not Resolved]
  - Libido decreased [Recovered/Resolved]
  - Reading disorder [Unknown]
  - Genital atrophy [Unknown]
  - Tinnitus [Unknown]
  - Hypotrichosis [Unknown]
  - Nocturia [Unknown]
  - Hormone level abnormal [Unknown]
  - Disturbance in attention [Unknown]
  - Myalgia [Unknown]
  - Insomnia [Recovered/Resolved]
  - Sleep disorder [Recovered/Resolved]
  - Fatigue [Unknown]
  - Listless [Unknown]
  - Progesterone decreased [Recovered/Resolved]
  - Alanine aminotransferase increased [Not Recovered/Not Resolved]
  - Blood alkaline phosphatase increased [Not Recovered/Not Resolved]
  - Post-traumatic stress disorder [Not Recovered/Not Resolved]
  - Coordination abnormal [Unknown]
  - Gynaecomastia [Unknown]
  - Anxiety [Recovered/Resolved]
  - Tension [Recovering/Resolving]
  - Sensation of foreign body [Unknown]
  - Sensory processing disorder [Unknown]
  - Gamma-glutamyltransferase increased [Not Recovered/Not Resolved]
  - Genital hypoaesthesia [Unknown]
  - Mood altered [Unknown]
  - Muscle atrophy [Unknown]
  - Feeling abnormal [Unknown]
  - Hair texture abnormal [Unknown]
  - Skin atrophy [Unknown]
  - Pollakiuria [Unknown]
  - Facial asymmetry [Unknown]
  - Nervousness [Recovered/Resolved]
  - Post 5-alpha-reductase inhibitor syndrome [Not Recovered/Not Resolved]
  - Hypersomnia [Unknown]
  - Panic attack [Recovered/Resolved]
  - Hypogonadism [Recovered/Resolved]
  - Oligoasthenozoospermia [Unknown]
  - Arrhythmia [Unknown]
  - Cerebral disorder [Unknown]
  - Blood cholesterol increased [Unknown]
  - Low density lipoprotein increased [Recovered/Resolved]
  - Dyspnoea [Unknown]
  - Sebaceous gland disorder [Unknown]
  - Interleukin-2 receptor increased [Unknown]
  - Paraesthesia [Recovered/Resolved]
  - Sleep apnoea syndrome [Unknown]
  - Heart rate irregular [Unknown]
  - Illusion [Recovered/Resolved]
  - Eye disorder [Unknown]

NARRATIVE: CASE EVENT DATE: 2011
